FAERS Safety Report 13242027 (Version 1)
Quarter: 2017Q1

REPORT INFORMATION
  Report Type: Spontaneous
  Country: JP (occurrence: JP)
  Receive Date: 20170217
  Receipt Date: 20170217
  Transmission Date: 20170428
  Serious: No
  Sender: FDA-Public Use
  Company Number: JP-ELI_LILLY_AND_COMPANY-JP201702003510

PATIENT
  Age: 50 Year
  Sex: Male

DRUGS (4)
  1. MYSLEE [Concomitant]
     Active Substance: ZOLPIDEM TARTRATE
     Route: 048
  2. LYRICA [Concomitant]
     Active Substance: PREGABALIN
     Indication: BACK PAIN
     Route: 048
  3. CYMBALTA [Suspect]
     Active Substance: DULOXETINE HYDROCHLORIDE
     Dosage: 40 MG, QD
     Route: 048
     Dates: start: 20160920, end: 20161021
  4. CYMBALTA [Suspect]
     Active Substance: DULOXETINE HYDROCHLORIDE
     Indication: BACK PAIN
     Dosage: 20 MG, QD
     Route: 048
     Dates: start: 20160827, end: 20160919

REACTIONS (1)
  - Hepatic function abnormal [Recovered/Resolved]

NARRATIVE: CASE EVENT DATE: 20161015
